FAERS Safety Report 18362072 (Version 1)
Quarter: 2020Q4

REPORT INFORMATION
  Report Type: Spontaneous
  Country: JP (occurrence: JP)
  Receive Date: 20201008
  Receipt Date: 20201008
  Transmission Date: 20210114
  Serious: Yes (Hospitalization, Other)
  Sender: FDA-Public Use
  Company Number: JP-PFIZER INC-2020350101

PATIENT
  Age: 74 Year
  Sex: Female
  Weight: 62.8 kg

DRUGS (1)
  1. XELJANZ [Suspect]
     Active Substance: TOFACITINIB CITRATE
     Indication: RHEUMATOID ARTHRITIS
     Dosage: 5 MG, ONCE DAILY/TWICE DAILY ALTERNATELY
     Route: 048
     Dates: start: 20170712, end: 20190601

REACTIONS (3)
  - Haemoglobin decreased [Not Recovered/Not Resolved]
  - Liver abscess [Recovered/Resolved]
  - Red blood cell count decreased [Not Recovered/Not Resolved]

NARRATIVE: CASE EVENT DATE: 20190601
